FAERS Safety Report 17502033 (Version 1)
Quarter: 2020Q1

REPORT INFORMATION
  Report Type: Spontaneous
  Country: US (occurrence: US)
  Receive Date: 20200305
  Receipt Date: 20200305
  Transmission Date: 20200409
  Serious: No
  Sender: FDA-Public Use
  Company Number: None

PATIENT
  Age: 54 Year
  Sex: Female
  Weight: 99 kg

DRUGS (10)
  1. TRAMADOL. [Concomitant]
     Active Substance: TRAMADOL
  2. LIDOCAINE/PRILOCAINE [Concomitant]
     Active Substance: LIDOCAINE\PRILOCAINE
  3. VITAMIN B [Concomitant]
     Active Substance: VITAMIN B
  4. LOSARTAN. [Concomitant]
     Active Substance: LOSARTAN
  5. FERROUS SULFATE. [Concomitant]
     Active Substance: FERROUS SULFATE
  6. HERCEPTIN [Concomitant]
     Active Substance: TRASTUZUMAB
  7. FUROSEMIDE. [Concomitant]
     Active Substance: FUROSEMIDE
  8. CAPECITABINE. [Suspect]
     Active Substance: CAPECITABINE
     Route: 048
  9. ALBUTEROL. [Concomitant]
     Active Substance: ALBUTEROL
  10. HYDROCHLOROTHIAZIDE. [Concomitant]
     Active Substance: HYDROCHLOROTHIAZIDE

REACTIONS (5)
  - Tenderness [None]
  - Scab [None]
  - Hypersensitivity [None]
  - Gait disturbance [None]
  - Skin exfoliation [None]

NARRATIVE: CASE EVENT DATE: 20200305
